FAERS Safety Report 8358650-6 (Version None)
Quarter: 2012Q2

REPORT INFORMATION
  Report Type: 
  Country: None (occurrence: None)
  Receive Date: 20120514
  Receipt Date: 20120509
  Transmission Date: 20120825
  Serious: Yes (Other)
  Sender: FDA-Public Use
  Company Number: GB-MERCK-1204USA03558

PATIENT
  Age: 83 Year
  Sex: Female
  Weight: 61 kg

DRUGS (10)
  1. COSOPT [Suspect]
     Indication: OPEN ANGLE GLAUCOMA
     Route: 047
     Dates: start: 20050101
  2. TRUSOPT [Suspect]
     Indication: OPEN ANGLE GLAUCOMA
     Route: 047
  3. TRUSOPT [Suspect]
     Indication: KERATOCONUS
     Route: 047
  4. OXYTETRACYCLINE [Concomitant]
     Indication: ROSACEA
     Route: 048
     Dates: start: 20060804
  5. TRAVATAN [Concomitant]
     Indication: KERATOCONUS
     Route: 047
     Dates: start: 20111208, end: 20120322
  6. HYPROMELLOSE [Concomitant]
     Indication: OCULAR DISCOMFORT
     Route: 047
     Dates: start: 20050204
  7. COSOPT [Suspect]
     Route: 047
     Dates: start: 20070423, end: 20120209
  8. TRAVATAN [Concomitant]
     Indication: OPEN ANGLE GLAUCOMA
     Route: 047
     Dates: start: 20111208, end: 20120322
  9. COSOPT [Suspect]
     Route: 047
     Dates: start: 20070423, end: 20120209
  10. COSOPT [Suspect]
     Indication: KERATOCONUS
     Route: 047
     Dates: start: 20050101

REACTIONS (1)
  - HYPERAESTHESIA [None]
